FAERS Safety Report 10102897 (Version 1)
Quarter: 2014Q2

REPORT INFORMATION
  Report Type: Spontaneous
  Country: CH (occurrence: CH)
  Receive Date: 20140424
  Receipt Date: 20140424
  Transmission Date: 20141212
  Serious: Yes (Hospitalization)
  Sender: FDA-Public Use
  Company Number: PHHY2014CH048666

PATIENT
  Age: 72 Year
  Sex: Male
  Weight: 90 kg

DRUGS (9)
  1. METFIN [Suspect]
     Indication: DIABETES MELLITUS
     Dosage: 1000 MG, BID
     Route: 048
     Dates: end: 20140405
  2. PROCORALAN [Interacting]
     Dosage: 5 MG, BID
     Route: 048
     Dates: start: 20140108, end: 20140405
  3. AMARYL [Concomitant]
     Dosage: 4 MG, QD
     Route: 048
     Dates: end: 20140405
  4. ASPIRIN CARDIO [Concomitant]
     Dosage: 100 MG, QD
     Route: 048
  5. LISITRIL [Concomitant]
     Dosage: 5 MG, QD
     Route: 048
  6. SIMVASTATIN [Concomitant]
     Dosage: 40 MG, QD
     Route: 048
     Dates: end: 20140405
  7. NITROGLYCERIN [Concomitant]
     Route: 048
  8. TRAMAL [Concomitant]
     Dosage: 100 MG, PRN
     Dates: end: 20140405
  9. DAFALGAN [Concomitant]
     Dosage: 1 G, PRN
     Route: 048
     Dates: end: 20140405

REACTIONS (6)
  - Atrioventricular block complete [Recovered/Resolved]
  - Cardiac failure [Recovering/Resolving]
  - Hyperkalaemia [Recovered/Resolved]
  - Renal failure acute [Recovering/Resolving]
  - Hyperlactacidaemia [Recovered/Resolved]
  - Hepatic enzyme increased [Recovering/Resolving]
